FAERS Safety Report 7228270-5 (Version None)
Quarter: 2011Q1

REPORT INFORMATION
  Report Type: 
  Country: None (occurrence: None)
  Receive Date: 20110114
  Receipt Date: 20101229
  Transmission Date: 20110831
  Serious: No
  Sender: FDA-Public Use
  Company Number: US-B.I. PHARMACEUTICALS,INC./RIDGEFIELD-2010-BP-13517BP

PATIENT
  Age: 57 Year
  Sex: Female

DRUGS (9)
  1. SPIRIVA [Suspect]
     Indication: BRONCHITIS
  2. XANAX [Concomitant]
     Indication: SPINAL COLUMN STENOSIS
  3. OXYGEN [Concomitant]
     Indication: CHRONIC OBSTRUCTIVE PULMONARY DISEASE
  4. SPIRIVA [Suspect]
     Indication: CHRONIC OBSTRUCTIVE PULMONARY DISEASE
     Dosage: 18 MCG
     Route: 055
     Dates: start: 20100601
  5. SPIRIVA [Suspect]
     Indication: BRONCHIECTASIS
  6. NYSTATIN [Concomitant]
     Indication: CANDIDIASIS
  7. PERCOCET [Concomitant]
     Indication: SPINAL COLUMN STENOSIS
  8. PAXIL [Concomitant]
     Indication: SPINAL COLUMN STENOSIS
  9. DIFLUCAN [Concomitant]
     Indication: CANDIDIASIS

REACTIONS (2)
  - BLOOD TEST ABNORMAL [None]
  - CANDIDIASIS [None]
